FAERS Safety Report 7582708-2 (Version None)
Quarter: 2011Q2

REPORT INFORMATION
  Report Type: 
  Country: None (occurrence: None)
  Receive Date: 20110630
  Receipt Date: 20110628
  Transmission Date: 20111010
  Serious: Yes (Other)
  Sender: FDA-Public Use
  Company Number: US-PFIZER INC-2011144872

PATIENT
  Sex: Female

DRUGS (1)
  1. CELECOXIB [Suspect]
     Dosage: UNK

REACTIONS (4)
  - DIARRHOEA [None]
  - RASH [None]
  - DYSPNOEA [None]
  - PARAESTHESIA [None]
